FAERS Safety Report 17439191 (Version 3)
Quarter: 2020Q2

REPORT INFORMATION
  Report Type: Report from Study
  Country: PL (occurrence: PL)
  Receive Date: 20200220
  Receipt Date: 20200428
  Transmission Date: 20200713
  Serious: Yes (Hospitalization)
  Sender: FDA-Public Use
  Company Number: PL-ROCHE-2409075

PATIENT
  Age: 69 Year
  Sex: Male
  Weight: 76 kg

DRUGS (16)
  1. ATEZOLIZUMAB. [Suspect]
     Active Substance: ATEZOLIZUMAB
     Indication: HEPATOCELLULAR CARCINOMA
     Dosage: MOST RECENT DOSE 1200 MG PRIOR TO SAE ONSET: 29/JUL/2019.
     Route: 042
     Dates: start: 20181203
  2. PREDNISONE. [Suspect]
     Active Substance: PREDNISONE
     Route: 048
     Dates: start: 20190912, end: 20190916
  3. CAPTOPRIL. [Concomitant]
     Active Substance: CAPTOPRIL
     Indication: HYPERTENSION
     Route: 065
     Dates: start: 201712
  4. NYSTATIN. [Concomitant]
     Active Substance: NYSTATIN
     Indication: ORAL CANDIDIASIS
     Route: 065
     Dates: start: 20190225
  5. ESSENTIALE FORTE [Concomitant]
     Indication: ALANINE AMINOTRANSFERASE INCREASED
  6. PARACETAMOL [Concomitant]
     Active Substance: ACETAMINOPHEN
     Indication: PYREXIA
     Dosage: ONGOING.
     Route: 065
     Dates: start: 201811
  7. ZOLPIC [Concomitant]
     Indication: SLEEP DISORDER
     Route: 065
     Dates: start: 20190506
  8. NYSTATYNA [Concomitant]
     Indication: ORAL CANDIDIASIS
     Route: 065
     Dates: start: 20190225
  9. BEVACIZUMAB. [Suspect]
     Active Substance: BEVACIZUMAB
     Indication: HEPATOCELLULAR CARCINOMA
     Dosage: MOST RECENT DOSE 1125 MG PRIOR TO SAE ONSET: 29/JUL/2019.
     Route: 042
     Dates: start: 20181203
  10. PREDNISONE. [Suspect]
     Active Substance: PREDNISONE
     Indication: DIARRHOEA
     Route: 048
     Dates: start: 20190820, end: 20190911
  11. ESSENTIALE FORTE [Concomitant]
     Indication: ASPARTATE AMINOTRANSFERASE INCREASED
     Route: 065
     Dates: start: 20190429
  12. PANTOPRAZOLE [Concomitant]
     Active Substance: PANTOPRAZOLE
     Indication: PROPHYLAXIS
     Route: 065
     Dates: start: 20190820, end: 20191004
  13. VORICONAZOLE ACCORD [Concomitant]
     Indication: ORAL CANDIDIASIS
     Route: 065
     Dates: start: 20190717
  14. INDAPAMIDE;PERINDOPRIL ERBUMINE [Concomitant]
     Indication: HYPERTENSION
     Route: 065
     Dates: start: 20190429
  15. LOPERAMID [Concomitant]
     Active Substance: LOPERAMIDE
     Indication: DIARRHOEA
     Route: 065
     Dates: start: 20190729
  16. EUTHYROX [Concomitant]
     Active Substance: LEVOTHYROXINE SODIUM
     Indication: HYPOTHYROIDISM
     Route: 065
     Dates: start: 20190429

REACTIONS (1)
  - Diabetes mellitus [Recovered/Resolved with Sequelae]

NARRATIVE: CASE EVENT DATE: 20190911
